FAERS Safety Report 10812280 (Version 1)
Quarter: 2015Q1

REPORT INFORMATION
  Report Type: Spontaneous
  Country: US (occurrence: None)
  Receive Date: 20150212
  Receipt Date: 20150212
  Transmission Date: 20150721
  Serious: No
  Sender: FDA-Public Use
  Company Number: None

PATIENT
  Age: 36 Year
  Sex: Female
  Weight: 63.5 kg

DRUGS (1)
  1. MIRENA [Suspect]
     Active Substance: LEVONORGESTREL
     Indication: CONTRACEPTION
     Dosage: 1 DOSE
     Route: 067
     Dates: start: 20140422, end: 20150202

REACTIONS (5)
  - Vomiting [None]
  - Depression [None]
  - Rash [None]
  - Migraine [None]
  - Weight increased [None]

NARRATIVE: CASE EVENT DATE: 20150202
